FAERS Safety Report 20110148 (Version 1)
Quarter: 2021Q4

REPORT INFORMATION
  Report Type: Spontaneous
  Country: US (occurrence: None)
  Receive Date: 20211124
  Receipt Date: 20211124
  Transmission Date: 20220304
  Serious: No
  Sender: FDA-Public Use
  Company Number: None

PATIENT

DRUGS (2)
  1. TRAZODONE HCL [Suspect]
     Active Substance: TRAZODONE HYDROCHLORIDE
  2. TOPIRAMATE [Suspect]
     Active Substance: TOPIRAMATE

REACTIONS (5)
  - Product label confusion [None]
  - Product name confusion [None]
  - Product name confusion [None]
  - Product packaging confusion [None]
  - Wrong product stored [None]
